FAERS Safety Report 24679957 (Version 2)
Quarter: 2024Q4

REPORT INFORMATION
  Report Type: Spontaneous
  Country: KR (occurrence: KR)
  Receive Date: 20241129
  Receipt Date: 20241212
  Transmission Date: 20250115
  Serious: Yes (Other)
  Sender: NOVARTIS
  Company Number: KR-002147023-NVSC2024KR225688

PATIENT
  Age: 53 Year
  Sex: Female

DRUGS (2)
  1. IMATINIB [Suspect]
     Active Substance: IMATINIB
     Indication: Chronic myeloid leukaemia
     Dosage: 400 MG
     Route: 065
     Dates: start: 201808
  2. TASIGNA [Suspect]
     Active Substance: NILOTINIB
     Indication: Chronic myeloid leukaemia
     Dosage: UNK
     Route: 065
     Dates: start: 201907

REACTIONS (4)
  - Cerebral artery stenosis [Unknown]
  - Carotid artery stenosis [Unknown]
  - Peripheral arterial occlusive disease [Unknown]
  - Hemiplegia [Unknown]

NARRATIVE: CASE EVENT DATE: 20220401
